FAERS Safety Report 6354205-3 (Version None)
Quarter: 2009Q3

REPORT INFORMATION
  Report Type: 
  Country: None (occurrence: None)
  Receive Date: 20090914
  Receipt Date: 20090901
  Transmission Date: 20100115
  Serious: Yes (Other)
  Sender: FDA-Public Use
  Company Number: PHHY2009ZA37426

PATIENT
  Sex: Male

DRUGS (10)
  1. TAREG [Suspect]
     Indication: HYPERTENSION
     Dosage: 80 MG, BID
  2. CARLOC [Concomitant]
     Dosage: 25 MG, BID
  3. LASIX [Concomitant]
     Dosage: 40 MG ON ALTERNATE DAYS
  4. SPIRACTIN [Concomitant]
     Dosage: 25 MG ON ALTERNATE DAYS
  5. CRESTOR [Concomitant]
     Dosage: 10 MG DAILY
  6. DISPRIN [Concomitant]
     Dosage: HALF TABLET DAILY
  7. CILIEST [Concomitant]
     Dosage: 30 MG, UNK
  8. MYSOLINE [Concomitant]
  9. TEGRETOL [Concomitant]
     Indication: EPILEPSY
  10. PURATA [Concomitant]
     Indication: SLEEP DISORDER
     Dosage: 15 MG, UNK

REACTIONS (1)
  - BLOOD PRESSURE DECREASED [None]
